FAERS Safety Report 8450209-5 (Version None)
Quarter: 2012Q2

REPORT INFORMATION
  Report Type: 
  Country: None (occurrence: None)
  Receive Date: 20120614
  Receipt Date: 20120614
  Transmission Date: 20120825
  Serious: Yes (Other)
  Sender: FDA-Public Use
  Company Number: None

PATIENT
  Age: 57 Year
  Sex: Female

DRUGS (1)
  1. PLAVIX [Suspect]
     Indication: PERIPHERAL VASCULAR DISORDER
     Dosage: 75MG ONCE A DAY PO
     Route: 048

REACTIONS (3)
  - PRODUCT SUBSTITUTION ISSUE [None]
  - ABNORMAL DREAMS [None]
  - INSOMNIA [None]
